FAERS Safety Report 5586900-8 (Version None)
Quarter: 2008Q1

REPORT INFORMATION
  Report Type: 
  Country: None (occurrence: None)
  Receive Date: 20080108
  Receipt Date: 20080108
  Transmission Date: 20080703
  Serious: Yes (Other)
  Sender: FDA-Public Use
  Company Number: None

PATIENT
  Age: 56 Year
  Sex: Female
  Weight: 82.5 kg

DRUGS (2)
  1. FLEBOGAMMA [Suspect]
     Indication: NEUROPATHY PERIPHERAL
     Dosage: 35GM  EVERY 3 WEEKS  IV DRIP
     Route: 041
     Dates: start: 20070614, end: 20071109
  2. FLEBOGAMMA [Suspect]

REACTIONS (4)
  - BACK PAIN [None]
  - DYSKINESIA [None]
  - INFUSION RELATED REACTION [None]
  - URTICARIA [None]
